FAERS Safety Report 9746396 (Version 1)
Quarter: 2013Q4

REPORT INFORMATION
  Report Type: Spontaneous
  Country: CA (occurrence: CA)
  Receive Date: 20131211
  Receipt Date: 20131211
  Transmission Date: 20140711
  Serious: Yes (Other)
  Sender: FDA-Public Use
  Company Number: CA-TEVA-450091USA

PATIENT
  Age: 45 Year
  Sex: Female

DRUGS (2)
  1. RATIO-ACLAVULANATE [Suspect]
     Indication: SINUSITIS
     Dosage: 3 TABLET DAILY; 875MG/125MG
     Route: 048
     Dates: start: 20131206, end: 20131208
  2. BUSCOPAN [Concomitant]
     Indication: GASTROINTESTINAL PAIN
     Route: 048

REACTIONS (4)
  - Coeliac disease [Not Recovered/Not Resolved]
  - Abdominal distension [Not Recovered/Not Resolved]
  - Diarrhoea [Not Recovered/Not Resolved]
  - Gastrointestinal pain [Not Recovered/Not Resolved]
